FAERS Safety Report 24624876 (Version 1)
Quarter: 2024Q4

REPORT INFORMATION
  Report Type: Spontaneous
  Country: US (occurrence: US)
  Receive Date: 20241115
  Receipt Date: 20241115
  Transmission Date: 20250115
  Serious: No
  Sender: ROCHE
  Company Number: US-ROCHE-10000129852

PATIENT
  Age: 60 Year
  Sex: Male

DRUGS (2)
  1. EVRYSDI [Suspect]
     Active Substance: RISDIPLAM
     Indication: Spinal muscular atrophy
     Route: 048
     Dates: start: 20220520
  2. ZEPBOUND [Concomitant]
     Active Substance: TIRZEPATIDE

REACTIONS (2)
  - Dyspepsia [Recovering/Resolving]
  - Dizziness [Unknown]
